FAERS Safety Report 7648491-7 (Version None)
Quarter: 2011Q3

REPORT INFORMATION
  Report Type: 
  Country: None (occurrence: None)
  Receive Date: 20110801
  Receipt Date: 20110725
  Transmission Date: 20111222
  Serious: Yes (Other)
  Sender: FDA-Public Use
  Company Number: FR-GILEAD-2011-0042248

PATIENT
  Sex: Female

DRUGS (5)
  1. REYATAZ [Suspect]
     Indication: HIV INFECTION
     Route: 048
     Dates: start: 20050224
  2. EPIVIR [Concomitant]
     Dates: start: 20050224, end: 20060625
  3. VIREAD [Concomitant]
     Indication: HIV INFECTION
     Dates: end: 20060825
  4. NORVIR [Suspect]
     Route: 048
     Dates: start: 20050224
  5. TRUVADA [Suspect]
     Indication: HIV INFECTION
     Route: 048
     Dates: start: 20060825

REACTIONS (1)
  - RENAL COLIC [None]
